FAERS Safety Report 18549016 (Version 1)
Quarter: 2020Q4

REPORT INFORMATION
  Report Type: Other
  Country: US (occurrence: US)
  Receive Date: 20201126
  Receipt Date: 20201126
  Transmission Date: 20210114
  Serious: Yes (Life-Threatening, Hospitalization, Other)
  Sender: FDA-Public Use
  Company Number: US-APPCO PHARMA LLC-2096335

PATIENT
  Age: 75 Year
  Sex: Female

DRUGS (2)
  1. METRONIDAZOLE. [Suspect]
     Active Substance: METRONIDAZOLE
     Indication: DIVERTICULITIS
     Route: 065
  2. CIPROFLOXACIN. [Suspect]
     Active Substance: CIPROFLOXACIN
     Route: 065

REACTIONS (3)
  - Renal failure [Recovering/Resolving]
  - Blood creatinine increased [Recovered/Resolved]
  - Posterior reversible encephalopathy syndrome [Recovered/Resolved]
